FAERS Safety Report 6128235-0 (Version None)
Quarter: 2009Q1

REPORT INFORMATION
  Report Type: 
  Country: None (occurrence: None)
  Receive Date: 20090319
  Receipt Date: 20090220
  Transmission Date: 20090719
  Serious: Yes (Other)
  Sender: FDA-Public Use
  Company Number: 1000004657

PATIENT
  Age: 79 Year
  Sex: Female

DRUGS (10)
  1. NEBIVOLOL HCL [Suspect]
     Indication: HYPERTENSION
     Dosage: 5 MG (5 MG), ORAL
     Route: 048
     Dates: start: 20081029, end: 20081114
  2. MAALOX [Concomitant]
  3. OSTEOFOS D3 [Concomitant]
  4. SERC [Concomitant]
  5. DONA (GLUCOSAMINE SULFATE) [Concomitant]
  6. OLMESARTAN MEDOXOMIL [Concomitant]
  7. PARACETAMOL [Concomitant]
  8. CENTYL K [Concomitant]
  9. ETORICOXIB [Concomitant]
  10. ZACIN (CAPSAICIN) [Concomitant]

REACTIONS (2)
  - CONTUSION [None]
  - THROMBOCYTOPENIA [None]
